FAERS Safety Report 14178044 (Version 1)
Quarter: 2017Q4

REPORT INFORMATION
  Report Type: Spontaneous
  Country: US (occurrence: US)
  Receive Date: 20171110
  Receipt Date: 20171110
  Transmission Date: 20180321
  Serious: No
  Sender: FDA-Public Use
  Company Number: US-TEVA-820660ACC

PATIENT

DRUGS (1)
  1. NUVIGIL [Suspect]
     Active Substance: ARMODAFINIL
     Indication: CRANIOCEREBRAL INJURY
     Dates: start: 201707

REACTIONS (3)
  - Product use in unapproved indication [Unknown]
  - Acne cystic [Unknown]
  - Drug ineffective for unapproved indication [Unknown]
